FAERS Safety Report 8847089 (Version 3)
Quarter: 2013Q1

REPORT INFORMATION
  Report Type: Spontaneous
  Country: US (occurrence: US)
  Receive Date: 20121018
  Receipt Date: 20130303
  Transmission Date: 20140127
  Serious: No
  Sender: FDA-Public Use
  Company Number: US-009507513-1210USA002298

PATIENT
  Age: 63 Year
  Sex: Female

DRUGS (4)
  1. PEGINTRON [Suspect]
     Indication: HEPATITIS C
     Dosage: UNK
     Dates: start: 20120909
  2. RIBASPHERE [Suspect]
     Indication: HEPATITIS C
     Dosage: UNK
     Dates: start: 20120909
  3. VICTRELIS [Suspect]
     Indication: HEPATITIS C
     Dosage: 800 MG, TID
     Route: 048
     Dates: start: 20121007
  4. NEUPOGEN [Concomitant]

REACTIONS (5)
  - Visual acuity reduced [Unknown]
  - Muscular weakness [Unknown]
  - Fatigue [Unknown]
  - Pollakiuria [Unknown]
  - Fatigue [Unknown]
